FAERS Safety Report 9212960 (Version 1)
Quarter: 2013Q2

REPORT INFORMATION
  Report Type: Report from Study
  Country: US (occurrence: US)
  Receive Date: 20130405
  Receipt Date: 20130405
  Transmission Date: 20140414
  Serious: Yes (Other)
  Sender: FDA-Public Use
  Company Number: US-JNJFOC-20130318271

PATIENT
  Age: 25 Year
  Sex: Female
  Weight: 62.14 kg

DRUGS (1)
  1. REMICADE [Suspect]
     Indication: COLITIS ULCERATIVE
     Dosage: 2 INFUSIONS; ^SOLUTION/TWICE^
     Route: 042
     Dates: start: 201201, end: 201202

REACTIONS (1)
  - Systemic lupus erythematosus [Unknown]
